FAERS Safety Report 22337221 (Version 1)
Quarter: 2023Q2

REPORT INFORMATION
  Report Type: Spontaneous
  Country: US (occurrence: US)
  Receive Date: 20230518
  Receipt Date: 20230518
  Transmission Date: 20230721
  Serious: No
  Sender: FDA-Public Use
  Company Number: US-BRISTOL-MYERS SQUIBB COMPANY-2023-069380

PATIENT
  Age: 76 Year
  Sex: Female

DRUGS (1)
  1. LENALIDOMIDE [Suspect]
     Active Substance: LENALIDOMIDE
     Indication: Myelodysplastic syndrome
     Dosage: QD14DON14DOFF ( 14 DAYS ON AND 14 DAYS OFF)
     Route: 048

REACTIONS (3)
  - Nausea [Unknown]
  - Eating disorder [Unknown]
  - Off label use [Unknown]
